FAERS Safety Report 5761219-0 (Version None)
Quarter: 2008Q2

REPORT INFORMATION
  Report Type: 
  Country: None (occurrence: None)
  Receive Date: 20080606
  Receipt Date: 20080529
  Transmission Date: 20081010
  Serious: Yes (Hospitalization)
  Sender: FDA-Public Use
  Company Number: PHHY2008ES09205

PATIENT
  Age: 48 Year
  Sex: Female

DRUGS (4)
  1. VOLTAREN [Suspect]
     Indication: POSTOPERATIVE ANALGESIA
     Dosage: 75MG
     Route: 042
     Dates: start: 20080407, end: 20080407
  2. ATROPINE [Suspect]
     Indication: ANAESTHETIC PREMEDICATION
     Dosage: UNK
     Route: 042
     Dates: start: 20080407, end: 20080407
  3. MIDAZOLAM HCL [Concomitant]
     Indication: ANAESTHESIA
     Dosage: UNK
     Route: 042
     Dates: start: 20080404, end: 20080407
  4. FENTANYL TRANSDERMAL SYSTEM [Concomitant]
     Indication: ANAESTHESIA
     Dosage: UNK
     Dates: start: 20080407, end: 20080407

REACTIONS (2)
  - DRUG INTERACTION [None]
  - HYPERSENSITIVITY [None]
